FAERS Safety Report 7395573-3 (Version None)
Quarter: 2011Q2

REPORT INFORMATION
  Report Type: 
  Country: None (occurrence: None)
  Receive Date: 20110405
  Receipt Date: 20110325
  Transmission Date: 20111010
  Serious: Yes (Hospitalization)
  Sender: FDA-Public Use
  Company Number: PHHY2010JP88298

PATIENT
  Age: 50 Year
  Sex: Female

DRUGS (7)
  1. CYCLOSPORINE [Suspect]
     Indication: LIVER TRANSPLANT
  2. RITUXIMAB [Concomitant]
     Indication: LIVER TRANSPLANT
     Dosage: 500 MG/ BODY
  3. NAFAMOSTAT MESILATE [Concomitant]
  4. CELLCEPT [Concomitant]
     Indication: LIVER TRANSPLANT
  5. TACROLIMUS [Concomitant]
     Indication: LIVER TRANSPLANT
  6. SIMULECT [Suspect]
     Indication: LIVER TRANSPLANT
     Route: 042
  7. PROSTAGLANDIN E2 [Concomitant]

REACTIONS (5)
  - LIVER DISORDER [None]
  - HYPERBILIRUBINAEMIA [None]
  - THROMBOTIC MICROANGIOPATHY [None]
  - PLATELET COUNT DECREASED [None]
  - ABDOMINAL WALL HAEMORRHAGE [None]
